FAERS Safety Report 24554385 (Version 1)
Quarter: 2024Q4

REPORT INFORMATION
  Report Type: Spontaneous
  Country: IE (occurrence: IE)
  Receive Date: 20241028
  Receipt Date: 20241028
  Transmission Date: 20250115
  Serious: Yes (Hospitalization, Other)
  Sender: CELLTRION
  Company Number: IE-AMGEN-IRLSP2023055057

PATIENT

DRUGS (8)
  1. ADALIMUMAB [Suspect]
     Active Substance: ADALIMUMAB
     Indication: Product used for unknown indication
     Dosage: 40 MILLIGRAM, QWK / DOSAGE1: UNIT=NOT AVAILABLE
     Route: 065
  2. APREMILAST [Suspect]
     Active Substance: APREMILAST
     Indication: Psoriasis
     Dosage: 30 MILLIGRAM
     Route: 065
     Dates: start: 201903
  3. APREMILAST [Suspect]
     Active Substance: APREMILAST
     Dosage: 30 MILLIGRAM
     Route: 065
  4. PREDNISOLONE [Concomitant]
     Active Substance: PREDNISOLONE
     Dosage: UNK
  5. MYCOPHENOLATE MOFETIL [Concomitant]
     Active Substance: MYCOPHENOLATE MOFETIL
     Dosage: UNK
  6. TACROLIMUS [Concomitant]
     Active Substance: TACROLIMUS
     Dosage: UNK
  7. ACITRETIN [Concomitant]
     Active Substance: ACITRETIN
  8. HUMIRA [Concomitant]
     Active Substance: ADALIMUMAB
     Dosage: UNK

REACTIONS (4)
  - Dermatitis exfoliative generalised [Unknown]
  - Pustular psoriasis [Unknown]
  - Psoriasis [Unknown]
  - Treatment failure [Unknown]

NARRATIVE: CASE EVENT DATE: 20200701
